FAERS Safety Report 5674334-7 (Version None)
Quarter: 2008Q2

REPORT INFORMATION
  Report Type: 
  Country: None (occurrence: None)
  Receive Date: 20080229
  Receipt Date: 20071024
  Transmission Date: 20081010
  Serious: Yes (Other)
  Sender: FDA-Public Use
  Company Number: 250549

PATIENT
  Age: 47 Year
  Sex: Female

DRUGS (2)
  1. NUTROPIN AQ [Suspect]
     Indication: GROWTH HORMONE DEFICIENCY
     Dates: start: 20040101
  2. THYROID REPLACEMENT (THYROID) [Concomitant]

REACTIONS (3)
  - ACROMEGALY [None]
  - FLUID RETENTION [None]
  - OVERDOSE [None]
